FAERS Safety Report 18755297 (Version 1)
Quarter: 2021Q1

REPORT INFORMATION
  Report Type: Spontaneous
  Country: US (occurrence: US)
  Receive Date: 20210115
  Receipt Date: 20210115
  Transmission Date: 20210419
  Serious: Yes (Life-Threatening)
  Sender: FDA-Public Use
  Company Number: None

PATIENT
  Age: 56 Year
  Sex: Female
  Weight: 88.6 kg

DRUGS (1)
  1. ARGATROBAN. [Suspect]
     Active Substance: ARGATROBAN

REACTIONS (2)
  - Melaena [None]
  - Therapy cessation [None]

NARRATIVE: CASE EVENT DATE: 20210113
